FAERS Safety Report 4706592-7 (Version None)
Quarter: 2005Q3

REPORT INFORMATION
  Report Type: 
  Country: None (occurrence: None)
  Receive Date: 20050705
  Receipt Date: 20050104
  Transmission Date: 20060218
  Serious: Yes (Other)
  Sender: FDA-Public Use
  Company Number: 200510013DE

PATIENT
  Age: 62 Year
  Sex: Female
  Weight: 73 kg

DRUGS (4)
  1. ARAVA [Suspect]
     Indication: RHEUMATOID ARTHRITIS
     Route: 048
     Dates: end: 20041208
  2. MST [Concomitant]
     Indication: ARTHRALGIA
  3. VALORON [Concomitant]
     Indication: PAIN
  4. URBASON [Concomitant]
     Indication: RHEUMATOID ARTHRITIS

REACTIONS (1)
  - HAEMOLYTIC ANAEMIA [None]
